FAERS Safety Report 9852397 (Version 1)
Quarter: 2014Q1

REPORT INFORMATION
  Report Type: Report from Study
  Country: CA (occurrence: CA)
  Receive Date: 20140129
  Receipt Date: 20140129
  Transmission Date: 20141002
  Serious: Yes (Other)
  Sender: FDA-Public Use
  Company Number: CA-JNJFOC-20140114223

PATIENT
  Age: 40 Year
  Sex: Female
  Weight: 79.38 kg

DRUGS (2)
  1. SIMPONI [Suspect]
     Indication: CROHN^S DISEASE
     Route: 058
  2. SIMPONI [Suspect]
     Indication: ANKYLOSING SPONDYLITIS
     Route: 058

REACTIONS (3)
  - Joint dislocation [Unknown]
  - Pneumonia [Unknown]
  - Skin infection [Unknown]
